FAERS Safety Report 14432204 (Version 1)
Quarter: 2018Q1

REPORT INFORMATION
  Report Type: Spontaneous
  Country: GB (occurrence: GB)
  Receive Date: 20180124
  Receipt Date: 20180124
  Transmission Date: 20180509
  Serious: Yes (Other)
  Sender: FDA-Public Use
  Company Number: GB-NOVOPROD-580897

PATIENT
  Age: 61 Year
  Sex: Female
  Weight: 64 kg

DRUGS (2)
  1. NOVORAPID [Suspect]
     Active Substance: INSULIN ASPART
     Indication: TYPE 1 DIABETES MELLITUS
     Dosage: 12 U, TID 12 UNITS 3XDAILY
     Route: 065
     Dates: start: 2010
  2. TRESIBA [Suspect]
     Active Substance: INSULIN DEGLUDEC
     Indication: TYPE 1 DIABETES MELLITUS
     Dosage: 18 U, QD 18 UNITS,1XDAILY
     Route: 065
     Dates: start: 2014

REACTIONS (2)
  - Hypoglycaemia [Unknown]
  - Neck injury [Unknown]
